FAERS Safety Report 16941385 (Version 4)
Quarter: 2020Q3

REPORT INFORMATION
  Report Type: Spontaneous
  Country: US (occurrence: US)
  Receive Date: 20191021
  Receipt Date: 20200729
  Transmission Date: 20201102
  Serious: Yes (Other)
  Sender: FDA-Public Use
  Company Number: US-JNJFOC-20191007559

PATIENT
  Age: 59 Year
  Sex: Male
  Weight: 70.37 kg

DRUGS (4)
  1. INVEGA SUSTENNA [Suspect]
     Active Substance: PALIPERIDONE PALMITATE
     Indication: PRODUCT USED FOR UNKNOWN INDICATION
     Route: 030
  2. INVEGA SUSTENNA [Suspect]
     Active Substance: PALIPERIDONE PALMITATE
  3. INVEGA SUSTENNA [Suspect]
     Active Substance: PALIPERIDONE PALMITATE
  4. GENDON [Concomitant]

REACTIONS (5)
  - Brain neoplasm [Unknown]
  - Drug ineffective [Unknown]
  - Encephalopathy [Unknown]
  - Adverse event [Not Recovered/Not Resolved]
  - Hypersomnia [Not Recovered/Not Resolved]
